FAERS Safety Report 24326749 (Version 1)
Quarter: 2024Q3

REPORT INFORMATION
  Report Type: Spontaneous
  Country: US (occurrence: US)
  Receive Date: 20240917
  Receipt Date: 20240917
  Transmission Date: 20241017
  Serious: Yes (Other)
  Sender: ALEMBIC
  Company Number: US-ALEMBIC PHARMACUETICALS LIMITED-2024SCAL001322

PATIENT

DRUGS (1)
  1. METHOTREXATE [Suspect]
     Active Substance: METHOTREXATE
     Indication: Rheumatoid arthritis
     Dosage: UNK
     Route: 065

REACTIONS (7)
  - Candida infection [Recovered/Resolved]
  - Nodule [Recovered/Resolved]
  - Peripheral swelling [Recovered/Resolved]
  - Skin ulcer [Recovered/Resolved]
  - Infective tenosynovitis [Recovered/Resolved]
  - Granulomatous dermatitis [Recovered/Resolved]
  - Infection [Recovered/Resolved]
